FAERS Safety Report 10673904 (Version 1)
Quarter: 2014Q4

REPORT INFORMATION
  Report Type: Spontaneous
  Country: US (occurrence: None)
  Receive Date: 20141222
  Receipt Date: 20141222
  Transmission Date: 20150529
  Serious: Yes (Hospitalization)
  Sender: FDA-Public Use
  Company Number: US-001527

PATIENT
  Age: 56 Year
  Sex: Female

DRUGS (2)
  1. SOLUTIONS FOR PARENTERAL NUTRITION [Concomitant]
     Active Substance: AMINO ACIDS\DEXTROSE\ELECTROLYTES NOS
  2. GATTEX [Suspect]
     Active Substance: TEDUGLUTIDE\WATER
     Indication: SHORT-BOWEL SYNDROME
     Dosage: 0.29 ML  QD, STREN/VOLUM: 0.29 ML|FREQU: ONCE A DAY SUBCUTANEOUS?
     Route: 058
     Dates: start: 20130919

REACTIONS (8)
  - Fall [None]
  - Hip fracture [None]
  - Faecal incontinence [None]
  - Spinal fracture [None]
  - Ilium fracture [None]
  - Immobile [None]
  - Device damage [None]
  - Pain [None]

NARRATIVE: CASE EVENT DATE: 201404
